FAERS Safety Report 5343613-5 (Version None)
Quarter: 2007Q2

REPORT INFORMATION
  Report Type: 
  Country: None (occurrence: None)
  Receive Date: 20070531
  Receipt Date: 20070521
  Transmission Date: 20071010
  Serious: Yes (Hospitalization)
  Sender: FDA-Public Use
  Company Number: L07-JPN-02174-01

PATIENT
  Age: 4 Year
  Sex: Female

DRUGS (1)
  1. THEOPHYLLINE [Suspect]
     Indication: ASTHMA

REACTIONS (15)
  - BLOOD CREATINE PHOSPHOKINASE INCREASED [None]
  - CEREBELLAR ATROPHY [None]
  - CSF TEST ABNORMAL [None]
  - ELECTROENCEPHALOGRAM ABNORMAL [None]
  - ENCEPHALOPATHY [None]
  - HYPERAMMONAEMIA [None]
  - HYPERGLYCAEMIA [None]
  - HYPERPYREXIA [None]
  - INTERLEUKIN LEVEL INCREASED [None]
  - MENTAL IMPAIRMENT [None]
  - PYREXIA [None]
  - SERUM FERRITIN INCREASED [None]
  - SINGLE PHOTON EMISSION COMPUTERISED TOMOGRAM ABNORMAL [None]
  - STATUS EPILEPTICUS [None]
  - THERAPEUTIC AGENT TOXICITY [None]
